FAERS Safety Report 14959931 (Version 1)
Quarter: 2018Q2

REPORT INFORMATION
  Report Type: Spontaneous
  Country: US (occurrence: US)
  Receive Date: 20180531
  Receipt Date: 20180531
  Transmission Date: 20180711
  Serious: No
  Sender: FDA-Public Use
  Company Number: US-TARO-2018TAR00258

PATIENT
  Sex: Male

DRUGS (1)
  1. BETAMETHASONE VALERATE FOAM 0.12% [Suspect]
     Active Substance: BETAMETHASONE VALERATE
     Indication: PSORIASIS
     Dosage: UNK

REACTIONS (1)
  - Drug effect incomplete [Unknown]
